FAERS Safety Report 17650610 (Version 1)
Quarter: 2020Q2

REPORT INFORMATION
  Report Type: Spontaneous
  Country: RS (occurrence: RS)
  Receive Date: 20200409
  Receipt Date: 20200409
  Transmission Date: 20200713
  Serious: Yes (Other)
  Sender: FDA-Public Use
  Company Number: RS-LUPIN PHARMACEUTICALS INC.-2019-05069

PATIENT
  Age: 79 Year
  Sex: Female

DRUGS (3)
  1. RANISAN [RANITIDINE] [Concomitant]
     Indication: GASTRITIS
     Dosage: 150 MILLIGRAM, BID
     Route: 065
     Dates: start: 20111227
  2. SULFAMETHOXAZOLE AND TRIMETHOPRIM TABLET 400 MG/80 MG [Suspect]
     Active Substance: SULFAMETHOXAZOLE\TRIMETHOPRIM
     Indication: URINARY TRACT INFECTION
     Dosage: 2 DOSAGE FORM, BID
     Route: 065
     Dates: start: 20120105, end: 20120109
  3. FARIN [WARFARIN] [Concomitant]
     Indication: PULMONARY EMBOLISM
     Dosage: 1 MILLIGRAM, QD
     Route: 065
     Dates: start: 20120102

REACTIONS (1)
  - White blood cell count decreased [Recovering/Resolving]

NARRATIVE: CASE EVENT DATE: 20120109
